FAERS Safety Report 5163606-0 (Version None)
Quarter: 2006Q4

REPORT INFORMATION
  Report Type: 
  Country: None (occurrence: None)
  Receive Date: 20061204
  Receipt Date: 20061122
  Transmission Date: 20070319
  Serious: Yes (Hospitalization, Other)
  Sender: FDA-Public Use
  Company Number: GB-JNJFOC-20061105224

PATIENT
  Sex: Female
  Weight: 94 kg

DRUGS (6)
  1. REMICADE [Suspect]
     Indication: RHEUMATOID ARTHRITIS
     Route: 042
  2. METHOTREXATE [Suspect]
     Indication: IMMUNOSUPPRESSION
     Route: 065
  3. DICLOFENAC SODIUM [Concomitant]
     Route: 065
  4. FOLIC ACID [Concomitant]
     Route: 065
  5. TRAMADOL HCL [Concomitant]
     Route: 065
  6. ORAL CONTRACEPTIVE PILL [Concomitant]

REACTIONS (2)
  - INDURATION [None]
  - SUBCUTANEOUS ABSCESS [None]
